FAERS Safety Report 7802555-3 (Version None)
Quarter: 2011Q4

REPORT INFORMATION
  Report Type: 
  Country: None (occurrence: None)
  Receive Date: 20111007
  Receipt Date: 20101227
  Transmission Date: 20120403
  Serious: Yes (Hospitalization, Other)
  Sender: FDA-Public Use
  Company Number: US-BAYER-201021666NA

PATIENT
  Age: 34 Year
  Sex: Female
  Weight: 134 kg

DRUGS (20)
  1. TOPAMAX [Concomitant]
     Dosage: 50 MG, UNK
  2. NIASPAN [Concomitant]
     Indication: PRODUCT USED FOR UNKNOWN INDICATION
  3. ZYRTEC-D 12 HOUR [Concomitant]
     Indication: MULTIPLE ALLERGIES
     Dosage: UNK
     Dates: start: 20000101
  4. XANAX [Concomitant]
     Dosage: 0.25 MG, UNK
  5. VALTREX [Concomitant]
     Indication: PRODUCT USED FOR UNKNOWN INDICATION
  6. WARFARIN SODIUM [Concomitant]
     Dosage: UNK UNK, QOD
     Route: 048
  7. XANAX [Concomitant]
     Dosage: 1 MG, UNK
     Route: 048
  8. AXERT [Concomitant]
     Indication: PRODUCT USED FOR UNKNOWN INDICATION
     Dosage: 12.5 MG, UNK
  9. FLUOXETINE [Concomitant]
     Indication: DEPRESSION
     Dosage: UNK
     Dates: start: 20090101
  10. SYNTHROID [Concomitant]
     Indication: PRODUCT USED FOR UNKNOWN INDICATION
     Dosage: UNK
     Dates: start: 20090101
  11. NAPROXEN [Concomitant]
     Indication: PRODUCT USED FOR UNKNOWN INDICATION
  12. YAZ [Suspect]
     Route: 048
     Dates: start: 20071101, end: 20080322
  13. CELEXA [Concomitant]
     Dosage: 40 MG, QD
  14. COPAXONE [Concomitant]
     Indication: MULTIPLE SCLEROSIS
     Dosage: UNK
     Dates: start: 20070301, end: 20080401
  15. IBUPROFEN [Concomitant]
     Indication: PRODUCT USED FOR UNKNOWN INDICATION
     Dosage: UNK
     Dates: start: 20000101, end: 20080323
  16. TOPAMAX [Concomitant]
     Indication: PRODUCT USED FOR UNKNOWN INDICATION
     Dosage: 12.5 MG, UNK
  17. REBIF [Concomitant]
     Indication: MULTIPLE SCLEROSIS
  18. FOLTX [Concomitant]
     Indication: PRODUCT USED FOR UNKNOWN INDICATION
  19. YASMIN [Suspect]
     Indication: CONTRACEPTION
     Route: 048
     Dates: start: 20071101, end: 20080322
  20. LEXAPRO [Concomitant]
     Indication: PRODUCT USED FOR UNKNOWN INDICATION
     Dosage: 10 MG, QD

REACTIONS (6)
  - EFFUSION [None]
  - CHOLELITHIASIS [None]
  - LEUKOCYTOSIS [None]
  - CHOLECYSTITIS ACUTE [None]
  - PNEUMONIA [None]
  - PULMONARY EMBOLISM [None]
